FAERS Safety Report 23559395 (Version 1)
Quarter: 2024Q1

REPORT INFORMATION
  Report Type: Spontaneous
  Country: US (occurrence: None)
  Receive Date: 20240223
  Receipt Date: 20240223
  Transmission Date: 20240410
  Serious: No
  Sender: FDA-Public Use
  Company Number: None

PATIENT
  Sex: 0

DRUGS (1)
  1. RIFAMPIN [Suspect]
     Active Substance: RIFAMPIN

REACTIONS (6)
  - Headache [None]
  - Nausea [None]
  - Malaise [None]
  - Chromaturia [None]
  - Faeces discoloured [None]
  - Tear discolouration [None]

NARRATIVE: CASE EVENT DATE: 20240222
